FAERS Safety Report 20403716 (Version 2)
Quarter: 2022Q2

REPORT INFORMATION
  Report Type: Spontaneous
  Country: US (occurrence: US)
  Receive Date: 20220131
  Receipt Date: 20220414
  Transmission Date: 20220721
  Serious: Yes (Hospitalization)
  Sender: FDA-Public Use
  Company Number: US-NOVOPROD-885971

PATIENT
  Age: 84 Year
  Sex: Female

DRUGS (4)
  1. LEVEMIR [Suspect]
     Active Substance: INSULIN DETEMIR
     Dosage: 15 UNITS
     Route: 058
  2. LEVEMIR [Suspect]
     Active Substance: INSULIN DETEMIR
     Dosage: UNK UNITS WITH AN EXTRA DOSE ADMINISTERED (DOSE INCREASED)
     Route: 058
  3. LEVEMIR [Suspect]
     Active Substance: INSULIN DETEMIR
     Indication: Type 1 diabetes mellitus
     Dosage: 6 UNITS
     Route: 058
  4. NOVOLOG [Suspect]
     Active Substance: INSULIN ASPART
     Indication: Type 1 diabetes mellitus
     Dosage: 10 UNITS
     Route: 058

REACTIONS (4)
  - Hypersomnia [Recovered/Resolved]
  - Blood glucose decreased [Recovered/Resolved]
  - Blood glucose increased [Recovered/Resolved]
  - Blood glucose increased [Unknown]

NARRATIVE: CASE EVENT DATE: 20220118
